FAERS Safety Report 4627849-4 (Version None)
Quarter: 2005Q2

REPORT INFORMATION
  Report Type: 
  Country: None (occurrence: None)
  Receive Date: 20050401
  Receipt Date: 20050322
  Transmission Date: 20051028
  Serious: Yes (Death, Hospitalization)
  Sender: FDA-Public Use
  Company Number: 2005047627

PATIENT
  Age: 63 Year
  Sex: Male

DRUGS (4)
  1. CAMPTOSAR [Suspect]
     Indication: LUNG NEOPLASM MALIGNANT
     Dosage: 85 MG, INTRAVENOUS
     Route: 042
     Dates: start: 20030722, end: 20030722
  2. ONDANSETRON HCL [Concomitant]
  3. CISPLATIN [Concomitant]
  4. MANNITOL [Concomitant]

REACTIONS (4)
  - DYSPNOEA [None]
  - REFUSAL OF TREATMENT BY RELATIVE [None]
  - RESPIRATORY FAILURE [None]
  - TACHYPNOEA [None]
